FAERS Safety Report 23697377 (Version 1)
Quarter: 2024Q2

REPORT INFORMATION
  Report Type: Spontaneous
  Country: US (occurrence: US)
  Receive Date: 20240402
  Receipt Date: 20240402
  Transmission Date: 20240716
  Serious: Yes (Disabling, Other)
  Sender: FDA-Public Use
  Company Number: US-REGENERON PHARMACEUTICALS, INC.-2024-052567

PATIENT
  Age: 69 Year
  Sex: Female

DRUGS (2)
  1. EYLEA [Suspect]
     Active Substance: AFLIBERCEPT
     Indication: Neovascular age-related macular degeneration
     Dosage: 2 MG, EVERY 4-6 WEEKS INTO LEFT EYE (FORMULATION: UNKNOWN)
     Route: 031
  2. EYLEA [Suspect]
     Active Substance: AFLIBERCEPT
     Dosage: 2 MG, EVERY 4-6 WEEKS INTO BOTH EYES (FORMULATION: UNKNOWN)
     Route: 031

REACTIONS (5)
  - Blindness unilateral [Unknown]
  - Non-infectious endophthalmitis [Unknown]
  - Visual acuity reduced [Unknown]
  - Eye pain [Unknown]
  - Wrong technique in product usage process [Unknown]
